FAERS Safety Report 4580083-9 (Version None)
Quarter: 2005Q1

REPORT INFORMATION
  Report Type: 
  Country: None (occurrence: None)
  Receive Date: 20050214
  Receipt Date: 20050131
  Transmission Date: 20050727
  Serious: Yes (Other)
  Sender: FDA-Public Use
  Company Number: BE-JNJFOC-20050200439

PATIENT
  Sex: Male

DRUGS (4)
  1. SPORANOX [Suspect]
     Indication: DRUG USE FOR UNKNOWN INDICATION
     Route: 049
  2. ZOCOR [Concomitant]
  3. ISOTEN [Concomitant]
  4. PERSENTINE [Concomitant]

REACTIONS (1)
  - BRADYARRHYTHMIA [None]
